FAERS Safety Report 17124270 (Version 1)
Quarter: 2019Q4

REPORT INFORMATION
  Report Type: Spontaneous
  Country: CN (occurrence: CN)
  Receive Date: 20191206
  Receipt Date: 20191206
  Transmission Date: 20200122
  Serious: Yes (Other)
  Sender: FDA-Public Use
  Company Number: CN-PFIZER INC-2019520486

PATIENT
  Age: 72 Year
  Sex: Male
  Weight: 75 kg

DRUGS (4)
  1. GLUCOSE INJECTION [Concomitant]
     Active Substance: DEXTROSE
     Indication: VEHICLE SOLUTION USE
     Dosage: 100 ML, 1X/DAY
     Route: 041
     Dates: start: 20191104, end: 20191106
  2. SODIUM CHLORIDE. [Concomitant]
     Active Substance: SODIUM CHLORIDE
     Indication: VEHICLE SOLUTION USE
     Dosage: 100 ML, 1X/DAY
     Route: 041
     Dates: start: 20191104, end: 20191107
  3. ROCEPHIN [Suspect]
     Active Substance: CEFTRIAXONE SODIUM
     Indication: INFECTION
     Dosage: 2 G, 1X/DAY
     Route: 041
     Dates: start: 20191104, end: 20191107
  4. METHYLPREDNISOLONE SODIUM SUCCINATE. [Suspect]
     Active Substance: METHYLPREDNISOLONE SODIUM SUCCINATE
     Indication: EPIGLOTTITIS
     Dosage: 80 MG, 1X/DAY
     Route: 041
     Dates: start: 20191104, end: 20191106

REACTIONS (4)
  - Off label use [Unknown]
  - Product use in unapproved indication [Unknown]
  - Pruritus [Recovering/Resolving]
  - Rash [Recovering/Resolving]

NARRATIVE: CASE EVENT DATE: 20191107
